FAERS Safety Report 6449477-0 (Version None)
Quarter: 2009Q4

REPORT INFORMATION
  Report Type: 
  Country: None (occurrence: None)
  Receive Date: 20091120
  Receipt Date: 20091112
  Transmission Date: 20100525
  Serious: Yes (Hospitalization)
  Sender: FDA-Public Use
  Company Number: US-ABBOTT-09P-163-0497620-00

PATIENT
  Sex: Female
  Weight: 66.284 kg

DRUGS (6)
  1. HUMIRA [Suspect]
     Indication: CROHN'S DISEASE
     Route: 058
     Dates: start: 20080703, end: 20081224
  2. HUMIRA [Suspect]
     Route: 058
     Dates: start: 20090206
  3. IMURAN [Concomitant]
     Indication: CROHN'S DISEASE
     Dates: start: 20071001
  4. ZEGERID [Concomitant]
     Indication: GASTROOESOPHAGEAL REFLUX DISEASE
     Dosage: 40-1100 MG
     Dates: start: 20070817
  5. HUMIRA [Concomitant]
     Dates: start: 20070430
  6. MULTI-VITAMIN [Concomitant]
     Indication: MEDICAL DIET
     Dates: start: 20070430

REACTIONS (1)
  - SINUSITIS [None]
